FAERS Safety Report 14556142 (Version 1)
Quarter: 2018Q1

REPORT INFORMATION
  Report Type: Spontaneous
  Country: CA (occurrence: CA)
  Receive Date: 20180221
  Receipt Date: 20180221
  Transmission Date: 20180509
  Serious: Yes (Other)
  Sender: FDA-Public Use
  Company Number: CA-CONCORDIA PHARMACEUTICALS INC.-GSH201802-000647

PATIENT
  Age: 58 Year
  Sex: Female

DRUGS (19)
  1. FOLIC ACID. [Concomitant]
     Active Substance: FOLIC ACID
     Dates: start: 20150811
  2. METHOTREXATE. [Suspect]
     Active Substance: METHOTREXATE
     Route: 058
     Dates: start: 20160503
  3. PLAQUENIL [Suspect]
     Active Substance: HYDROXYCHLOROQUINE SULFATE
     Indication: RHEUMATOID ARTHRITIS
     Route: 048
  4. ARAVA [Suspect]
     Active Substance: LEFLUNOMIDE
     Indication: RHEUMATOID ARTHRITIS
     Route: 048
     Dates: start: 200901, end: 200905
  5. METHOTREXATE. [Suspect]
     Active Substance: METHOTREXATE
     Route: 058
     Dates: start: 20170111
  6. SULFASALAZINE. [Suspect]
     Active Substance: SULFASALAZINE
     Route: 048
     Dates: start: 20170111
  7. METHOTREXATE. [Suspect]
     Active Substance: METHOTREXATE
     Route: 058
  8. MAXERAN [Concomitant]
     Active Substance: METOCLOPRAMIDE HYDROCHLORIDE
     Dates: start: 20150903
  9. SULFASALAZINE. [Suspect]
     Active Substance: SULFASALAZINE
     Route: 048
     Dates: start: 20170726
  10. METHOTREXATE. [Suspect]
     Active Substance: METHOTREXATE
     Route: 058
     Dates: start: 20150811
  11. METHOTREXATE. [Suspect]
     Active Substance: METHOTREXATE
     Route: 058
     Dates: start: 20160822
  12. ETANERCEPT [Concomitant]
     Active Substance: ETANERCEPT
     Indication: RHEUMATOID ARTHRITIS
     Dates: start: 20090801, end: 20170807
  13. METHOTREXATE. [Suspect]
     Active Substance: METHOTREXATE
     Indication: PRODUCT USED FOR UNKNOWN INDICATION
     Route: 048
     Dates: start: 200705, end: 200801
  14. METHOTREXATE. [Suspect]
     Active Substance: METHOTREXATE
     Route: 058
  15. SULFASALAZINE. [Suspect]
     Active Substance: SULFASALAZINE
     Indication: PRODUCT USED FOR UNKNOWN INDICATION
     Route: 048
     Dates: start: 20160503, end: 20170726
  16. METOJECT [Concomitant]
     Active Substance: METHOTREXATE SODIUM
     Dates: start: 20160503
  17. ENBREL [Concomitant]
     Active Substance: ETANERCEPT
     Indication: RHEUMATOID ARTHRITIS
     Dates: start: 20090801
  18. METHOTREXATE. [Suspect]
     Active Substance: METHOTREXATE
     Route: 058
     Dates: start: 20170726
  19. XELJANZ [Concomitant]
     Active Substance: TOFACITINIB CITRATE
     Indication: RHEUMATOID ARTHRITIS
     Dates: start: 20170816

REACTIONS (5)
  - Nausea [Not Recovered/Not Resolved]
  - Rheumatoid arthritis [Not Recovered/Not Resolved]
  - Drug effect incomplete [Unknown]
  - Condition aggravated [Not Recovered/Not Resolved]
  - Musculoskeletal stiffness [Not Recovered/Not Resolved]
